FAERS Safety Report 8759438 (Version 2)
Quarter: 2013Q4

REPORT INFORMATION
  Report Type: Spontaneous
  Country: US (occurrence: US)
  Receive Date: 20120829
  Receipt Date: 20131101
  Transmission Date: 20140711
  Serious: No
  Sender: FDA-Public Use
  Company Number: US-009507513-1208USA001352

PATIENT
  Sex: Male

DRUGS (3)
  1. MIRALAX [Suspect]
     Indication: PRODUCT USED FOR UNKNOWN INDICATION
     Dosage: UNK, QD
     Route: 048
  2. MIRALAX [Suspect]
     Indication: MEDICAL OBSERVATION
  3. METAMUCIL [Suspect]
     Indication: PRODUCT USED FOR UNKNOWN INDICATION
     Dosage: 1 TSP, QD
     Route: 048

REACTIONS (2)
  - Diarrhoea [Unknown]
  - Incorrect drug administration duration [Unknown]
